FAERS Safety Report 8223858-7 (Version None)
Quarter: 2012Q1

REPORT INFORMATION
  Report Type: 
  Country: None (occurrence: None)
  Receive Date: 20120321
  Receipt Date: 20120315
  Transmission Date: 20120608
  Serious: Yes (Other)
  Sender: FDA-Public Use
  Company Number: NL-PFIZER INC-2012063029

PATIENT
  Age: 36 Year
  Sex: Female

DRUGS (2)
  1. DEPO-PROVERA [Suspect]
     Indication: CONTRACEPTION
     Dosage: UNK
  2. NAPROXEN [Concomitant]
     Dosage: UNK

REACTIONS (13)
  - SEXUALLY TRANSMITTED DISEASE [None]
  - SUICIDAL IDEATION [None]
  - DEPRESSION [None]
  - ALOPECIA [None]
  - ENDOMETRIAL DISORDER [None]
  - FATIGUE [None]
  - LIBIDO DECREASED [None]
  - CRYING [None]
  - PERSONALITY CHANGE [None]
  - MENORRHAGIA [None]
  - FEELING ABNORMAL [None]
  - WEIGHT INCREASED [None]
  - BREAST PAIN [None]
